FAERS Safety Report 9154412 (Version 1)
Quarter: 2013Q1

REPORT INFORMATION
  Report Type: Spontaneous
  Country: US (occurrence: None)
  Receive Date: 20130207
  Receipt Date: 20130207
  Transmission Date: 20140127
  Serious: Yes (Hospitalization)
  Sender: FDA-Public Use
  Company Number: 2013S100259

PATIENT
  Age: 75 Year
  Sex: Female
  Weight: 83.91 kg

DRUGS (8)
  1. LIVALO [Suspect]
     Indication: BLOOD CHOLESTEROL
     Route: 048
     Dates: start: 2012
  2. EFFIENT [Suspect]
     Indication: CARDIAC DISORDER
     Dates: start: 20130122
  3. TRIBENZOR [Concomitant]
  4. EFFEXOR [Concomitant]
  5. ASA [Concomitant]
  6. FISH OIL [Concomitant]
  7. TYLENOL PM [Concomitant]
  8. TYLENOL ARTHRITIS [Concomitant]

REACTIONS (3)
  - Haemorrhage [None]
  - Contusion [None]
  - Impaired healing [None]
